FAERS Safety Report 8478064-8 (Version None)
Quarter: 2012Q2

REPORT INFORMATION
  Report Type: 
  Country: None (occurrence: None)
  Receive Date: 20120622
  Receipt Date: 20120613
  Transmission Date: 20120825
  Serious: Yes (Other)
  Sender: FDA-Public Use
  Company Number: FK201201703

PATIENT
  Age: 54 Year
  Sex: Female

DRUGS (2)
  1. GEMCITABINE [Concomitant]
  2. OXALIPLATIN [Suspect]
     Indication: ADENOCARCINOMA PANCREAS

REACTIONS (6)
  - BLEPHAROSPASM [None]
  - BRUXISM [None]
  - DYSARTHRIA [None]
  - AGITATION [None]
  - HYPERTONIA [None]
  - TREMOR [None]
